FAERS Safety Report 9464773 (Version 2)
Quarter: 2014Q2

REPORT INFORMATION
  Report Type: Spontaneous
  Country: CN (occurrence: CN)
  Receive Date: 20130819
  Receipt Date: 20140515
  Transmission Date: 20141212
  Serious: Yes (Hospitalization, Other)
  Sender: FDA-Public Use
  Company Number: PHHY2013CN085948

PATIENT
  Age: 70 Year
  Sex: Female
  Weight: 72 kg

DRUGS (4)
  1. LESCOL [Suspect]
     Indication: LIPIDS INCREASED
     Dosage: 1 DF, QN
     Route: 048
     Dates: start: 20130531, end: 20130615
  2. LESCOL [Suspect]
     Indication: HYPERLIPIDAEMIA
  3. METHYCOBAL [Concomitant]
     Dosage: 1 DF, QD
     Route: 048
     Dates: start: 20130606, end: 20130808
  4. ROSUVASTATIN [Concomitant]
     Indication: LIPIDS INCREASED
     Dosage: 1 DF, QD
     Route: 048
     Dates: start: 20130410, end: 20130808

REACTIONS (14)
  - Liver disorder [Recovering/Resolving]
  - Abdominal pain upper [Recovered/Resolved]
  - Nausea [Unknown]
  - Vomiting [Unknown]
  - Decreased appetite [Unknown]
  - Eructation [Unknown]
  - Infrequent bowel movements [Unknown]
  - Dizziness [Unknown]
  - Abdominal pain [Unknown]
  - Hepatic pain [Unknown]
  - Asthenia [Unknown]
  - Abdominal discomfort [Recovering/Resolving]
  - Tinnitus [Recovering/Resolving]
  - Blood pressure systolic increased [Recovering/Resolving]
